FAERS Safety Report 18200541 (Version 1)
Quarter: 2020Q3

REPORT INFORMATION
  Report Type: Other
  Country: US (occurrence: US)
  Receive Date: 20200827
  Receipt Date: 20200827
  Transmission Date: 20201103
  Serious: Yes (Hospitalization)
  Sender: FDA-Public Use
  Company Number: US-ROCHE-2458646

PATIENT
  Sex: Female
  Weight: 61.29 kg

DRUGS (3)
  1. OCREVUS [Suspect]
     Active Substance: OCRELIZUMAB
     Indication: RELAPSING-REMITTING MULTIPLE SCLEROSIS
  2. AMPYRA [Concomitant]
     Active Substance: DALFAMPRIDINE
  3. OCREVUS [Suspect]
     Active Substance: OCRELIZUMAB
     Indication: RELAPSING MULTIPLE SCLEROSIS
     Route: 042
     Dates: start: 2018

REACTIONS (5)
  - Cholelithiasis [Recovered/Resolved]
  - Sensory disturbance [Not Recovered/Not Resolved]
  - Weight decreased [Recovering/Resolving]
  - Vitamin D decreased [Recovered/Resolved]
  - Arthritis [Not Recovered/Not Resolved]

NARRATIVE: CASE EVENT DATE: 2018
